FAERS Safety Report 21224097 (Version 1)
Quarter: 2022Q3

REPORT INFORMATION
  Report Type: Spontaneous
  Country: US (occurrence: US)
  Receive Date: 20220817
  Receipt Date: 20220817
  Transmission Date: 20221027
  Serious: No
  Sender: FDA-Public Use
  Company Number: US-SA-2022MK000195

PATIENT
  Age: 55 Year
  Sex: Female

DRUGS (5)
  1. AFREZZA [Suspect]
     Active Substance: INSULIN HUMAN
     Indication: Type 1 diabetes mellitus
  2. AFREZZA [Suspect]
     Active Substance: INSULIN HUMAN
  3. AFREZZA [Suspect]
     Active Substance: INSULIN HUMAN
  4. TOUJEO [Concomitant]
     Active Substance: INSULIN GLARGINE
     Indication: Type 1 diabetes mellitus
  5. LYUMJEV [Concomitant]
     Active Substance: INSULIN LISPRO-AABC
     Indication: Type 1 diabetes mellitus

REACTIONS (2)
  - Product quality issue [Unknown]
  - Intentional device use issue [Unknown]
